FAERS Safety Report 24716819 (Version 1)
Quarter: 2024Q4

REPORT INFORMATION
  Report Type: Report from Study
  Country: CA (occurrence: CA)
  Receive Date: 20241210
  Receipt Date: 20241210
  Transmission Date: 20250115
  Serious: Yes (Other)
  Sender: AMGEN
  Company Number: CA-AMGEN-CANSL2024240450

PATIENT
  Age: 42 Year
  Sex: Male

DRUGS (1)
  1. MVASI [Suspect]
     Active Substance: BEVACIZUMAB-AWWB
     Indication: Product used for unknown indication
     Dosage: 330 MILLIGRAM
     Route: 065

REACTIONS (6)
  - Incision site haemorrhage [Unknown]
  - Monoplegia [Unknown]
  - Brain operation [Unknown]
  - Seizure [Unknown]
  - Hemiparesis [Unknown]
  - Pyrexia [Unknown]
